FAERS Safety Report 20958825 (Version 1)
Quarter: 2022Q2

REPORT INFORMATION
  Report Type: Spontaneous
  Country: US (occurrence: None)
  Receive Date: 20220614
  Receipt Date: 20220614
  Transmission Date: 20220721
  Serious: Yes (Hospitalization)
  Sender: FDA-Public Use
  Company Number: None

PATIENT
  Age: 73 Year
  Sex: Female

DRUGS (14)
  1. ENVARSUS XR [Suspect]
     Active Substance: TACROLIMUS
     Indication: Lung transplant
     Route: 048
     Dates: start: 20190710
  2. ACYCLOVIR CAP [Concomitant]
  3. ADVAIR HFA AER [Concomitant]
  4. AZITHROMYCIN [Concomitant]
  5. DICYCLOMINE CAP [Concomitant]
  6. ELIQUIS [Concomitant]
     Active Substance: APIXABAN
  7. FLUOXETINE TAB [Concomitant]
  8. GABAPENTIN [Concomitant]
     Active Substance: GABAPENTIN
  9. METOPROL TAR TAB [Concomitant]
  10. MYCOPHENOLATE MOFETIL [Concomitant]
     Active Substance: MYCOPHENOLATE MOFETIL
  11. OMEPRAZOLE SODIUM [Concomitant]
     Active Substance: OMEPRAZOLE SODIUM
  12. PRAVASTATIN [Concomitant]
     Active Substance: PRAVASTATIN
  13. SHINGRIX INJ [Concomitant]
  14. VALACYCLOVIR TAB [Concomitant]

REACTIONS (1)
  - Respiratory tract infection [None]

NARRATIVE: CASE EVENT DATE: 20220510
